FAERS Safety Report 22942715 (Version 20)
Quarter: 2025Q2

REPORT INFORMATION
  Report Type: Report from Study
  Country: CO (occurrence: CO)
  Receive Date: 20230914
  Receipt Date: 20250509
  Transmission Date: 20250716
  Serious: Yes (Life-Threatening, Hospitalization, Other)
  Sender: TAKEDA
  Company Number: CO-TAKEDA-2023TUS071358

PATIENT
  Age: 73 Year
  Sex: Female
  Weight: 42 kg

DRUGS (5)
  1. VEDOLIZUMAB [Suspect]
     Active Substance: VEDOLIZUMAB
     Indication: Crohn^s disease
     Dosage: 300 MILLIGRAM, Q4WEEKS
     Dates: start: 20220614
  2. VEDOLIZUMAB [Suspect]
     Active Substance: VEDOLIZUMAB
  3. VEDOLIZUMAB [Suspect]
     Active Substance: VEDOLIZUMAB
  4. DEXAMETHASONE [Suspect]
     Active Substance: DEXAMETHASONE
     Indication: Product used for unknown indication
  5. EPINEPHRINE [Suspect]
     Active Substance: EPINEPHRINE
     Indication: Product used for unknown indication

REACTIONS (28)
  - Drug hypersensitivity [Unknown]
  - Pneumonia [Recovered/Resolved]
  - Umbilical hernia [Recovering/Resolving]
  - Asphyxia [Recovered/Resolved]
  - Abdominal pain [Recovering/Resolving]
  - Malaise [Not Recovered/Not Resolved]
  - Abdominal distension [Not Recovered/Not Resolved]
  - Pain [Recovered/Resolved]
  - Weight decreased [Unknown]
  - Abdominal pain upper [Unknown]
  - Fall [Unknown]
  - Skin discolouration [Unknown]
  - Gait disturbance [Unknown]
  - Groin pain [Unknown]
  - Weight increased [Unknown]
  - Body height decreased [Unknown]
  - Nervousness [Unknown]
  - Crying [Unknown]
  - Procedural pain [Recovering/Resolving]
  - Poor venous access [Recovered/Resolved]
  - Cardiomegaly [Unknown]
  - Electrocardiogram abnormal [Unknown]
  - Gastritis [Recovered/Resolved]
  - Dizziness [Recovered/Resolved]
  - Vomiting [Recovered/Resolved]
  - Asthenia [Recovering/Resolving]
  - Infusion site pain [Recovered/Resolved]
  - Fatigue [Recovering/Resolving]

NARRATIVE: CASE EVENT DATE: 20230606
